FAERS Safety Report 5356664-1 (Version None)
Quarter: 2007Q2

REPORT INFORMATION
  Report Type: 
  Country: None (occurrence: None)
  Receive Date: 20070611
  Receipt Date: 20070531
  Transmission Date: 20071010
  Serious: Yes (Hospitalization)
  Sender: FDA-Public Use
  Company Number: 234414K07USA

PATIENT
  Age: 27 Year
  Sex: Male

DRUGS (2)
  1. REBIF [Suspect]
     Indication: MULTIPLE SCLEROSIS
     Dosage: 44 MCG, 3 IN 1 WEEKS, SUBCUTANEOUS
     Route: 058
     Dates: start: 20051130
  2. ZOLOFT [Concomitant]

REACTIONS (4)
  - AGGRESSION [None]
  - DEPRESSION [None]
  - MEMORY IMPAIRMENT [None]
  - URINARY TRACT INFECTION [None]
